FAERS Safety Report 4757942-7 (Version None)
Quarter: 2005Q3

REPORT INFORMATION
  Report Type: 
  Country: None (occurrence: None)
  Receive Date: 20050831
  Receipt Date: 20050816
  Transmission Date: 20060218
  Serious: Yes (Hospitalization)
  Sender: FDA-Public Use
  Company Number: DE-AMGEN-UK146912

PATIENT
  Age: 65 Year
  Sex: Female

DRUGS (2)
  1. KINERET [Suspect]
     Indication: RHEUMATOID ARTHRITIS
     Route: 058
     Dates: start: 20031101
  2. METHOTREXATE [Suspect]
     Dates: start: 20031101

REACTIONS (3)
  - CONDITION AGGRAVATED [None]
  - HERPES ZOSTER [None]
  - RHEUMATOID ARTHRITIS [None]
